FAERS Safety Report 12558747 (Version 1)
Quarter: 2016Q3

REPORT INFORMATION
  Report Type: Spontaneous
  Country: US (occurrence: US)
  Receive Date: 20160715
  Receipt Date: 20160715
  Transmission Date: 20161109
  Serious: No
  Sender: FDA-Public Use
  Company Number: US-JNJFOC-20160615538

PATIENT
  Age: 66 Year
  Sex: Female
  Weight: 63.5 kg

DRUGS (5)
  1. PROGESTERONE. [Concomitant]
     Active Substance: PROGESTERONE
     Indication: HORMONE REPLACEMENT THERAPY
     Route: 065
     Dates: start: 2011
  2. ESTRIOL [Concomitant]
     Active Substance: ESTRIOL
     Indication: HORMONE REPLACEMENT THERAPY
     Route: 065
     Dates: start: 2011
  3. IMODIUM MULTI-SYMPTOM RELIEF [Suspect]
     Active Substance: DIMETHICONE\LOPERAMIDE HYDROCHLORIDE
     Indication: FOOD POISONING
     Dosage: DOSAGE: 2 CAPLETS, THEN 1 CAPLET, THEN 1 CAPLET??FREQUENCY: AS DIRECTED
     Route: 048
     Dates: start: 20160612, end: 20160612
  4. IMODIUM MULTI-SYMPTOM RELIEF [Suspect]
     Active Substance: DIMETHICONE\LOPERAMIDE HYDROCHLORIDE
     Indication: GASTROENTERITIS VIRAL
     Dosage: DOSAGE: 2 CAPLETS, THEN 1 CAPLET, THEN 1 CAPLET??FREQUENCY: AS DIRECTED
     Route: 048
     Dates: start: 20160612, end: 20160612
  5. ESTROGEN [Concomitant]
     Active Substance: ESTRONE\SUS SCROFA OVARY
     Indication: HORMONE REPLACEMENT THERAPY
     Route: 065
     Dates: start: 2011

REACTIONS (2)
  - Unintentional use for unapproved indication [Unknown]
  - Face oedema [Not Recovered/Not Resolved]

NARRATIVE: CASE EVENT DATE: 20160612
